FAERS Safety Report 9528243 (Version 1)
Quarter: 2013Q1

REPORT INFORMATION
  Report Type: Spontaneous
  Country: US (occurrence: None)
  Receive Date: 20130322
  Receipt Date: 20130322
  Transmission Date: 20140127
  Serious: Yes (Other)
  Sender: FDA-Public Use
  Company Number: PHEH2012US003389

PATIENT
  Age: 51 Year
  Sex: Male

DRUGS (1)
  1. NEORAL [Suspect]
     Indication: COMPLICATIONS OF TRANSPLANTED HEART
     Route: 048
     Dates: start: 20110818, end: 20120118

REACTIONS (2)
  - Transplant rejection [None]
  - Drug ineffective [None]
